FAERS Safety Report 4557480-0 (Version None)
Quarter: 2005Q1

REPORT INFORMATION
  Report Type: 
  Country: None (occurrence: None)
  Receive Date: 20050103
  Receipt Date: 20040913
  Transmission Date: 20050727
  Serious: Yes (Other)
  Sender: FDA-Public Use
  Company Number: 2004UW19150

PATIENT
  Age: 60 Year
  Sex: Female
  Weight: 68.9467 kg

DRUGS (11)
  1. CRESTOR [Suspect]
     Indication: BLOOD CHOLESTEROL INCREASED
     Dosage: 5 MG PO
     Route: 048
     Dates: start: 20040701, end: 20040908
  2. CRESTOR [Suspect]
     Indication: BLOOD CHOLESTEROL INCREASED
     Dosage: 10 MG PO
     Route: 048
     Dates: start: 20040909
  3. ALTACE [Concomitant]
  4. ATENOLOL [Concomitant]
  5. ALLEGRA [Concomitant]
  6. PREVACID [Concomitant]
  7. CELEBREX [Concomitant]
  8. HYOSCYAMINE [Concomitant]
  9. NEURONTIN [Concomitant]
  10. ASPIRIN [Concomitant]
  11. VITAMINS [Concomitant]

REACTIONS (2)
  - DYSGEUSIA [None]
  - MUSCULAR WEAKNESS [None]
